FAERS Safety Report 5143425-1 (Version None)
Quarter: 2006Q4

REPORT INFORMATION
  Report Type: 
  Country: None (occurrence: None)
  Receive Date: 20061101
  Receipt Date: 20061101
  Transmission Date: 20070319
  Serious: Yes (Hospitalization)
  Sender: FDA-Public Use
  Company Number: None

PATIENT
  Age: 74 Year
  Sex: Female
  Weight: 44 kg

DRUGS (1)
  1. TEGRETOL [Suspect]
     Indication: FACIAL PAIN
     Dosage: 200 MG TID PO
     Route: 048

REACTIONS (4)
  - ANAEMIA [None]
  - DERMATITIS EXFOLIATIVE [None]
  - DRUG ERUPTION [None]
  - THROMBOCYTHAEMIA [None]
